FAERS Safety Report 9587312 (Version 1)
Quarter: 2013Q4

REPORT INFORMATION
  Report Type: Spontaneous
  Country: US (occurrence: US)
  Receive Date: 20131003
  Receipt Date: 20131003
  Transmission Date: 20140711
  Serious: No
  Sender: FDA-Public Use
  Company Number: US-PFIZER INC-2013281986

PATIENT
  Age: 57 Year
  Sex: Female
  Weight: 72.6 kg

DRUGS (5)
  1. DILANTIN [Suspect]
     Indication: EPILEPSY
     Dosage: 250 MG, 1X/DAY
     Dates: start: 19650731, end: 1967
  2. DILANTIN [Suspect]
     Dosage: 250 MG, 1X/DAY
     Dates: start: 1982
  3. DILANTIN [Suspect]
     Indication: EPILEPSY
     Dosage: UNK
  4. PHENYTOIN [Suspect]
     Indication: EPILEPSY
     Dosage: UNK
  5. FOSAMAX [Suspect]
     Indication: OSTEOPOROSIS
     Dosage: UNK
     Dates: start: 2004

REACTIONS (3)
  - Osteoporosis [Unknown]
  - Drug ineffective [Unknown]
  - Tooth fracture [Unknown]
